FAERS Safety Report 19945561 (Version 3)
Quarter: 2022Q1

REPORT INFORMATION
  Report Type: Spontaneous
  Country: US (occurrence: US)
  Receive Date: 20211012
  Receipt Date: 20220323
  Transmission Date: 20220423
  Serious: No
  Sender: FDA-Public Use
  Company Number: US-PFIZER INC-202100969905

PATIENT
  Age: 56 Year
  Sex: Female

DRUGS (5)
  1. XELJANZ [Suspect]
     Active Substance: TOFACITINIB CITRATE
     Indication: Pain
     Dosage: 5 MG
     Dates: start: 20210701
  2. XELJANZ [Suspect]
     Active Substance: TOFACITINIB CITRATE
     Dosage: 5 MG
     Dates: start: 20210716
  3. XELJANZ [Suspect]
     Active Substance: TOFACITINIB CITRATE
     Dosage: 5 MG
     Dates: start: 20210601
  4. XELJANZ [Suspect]
     Active Substance: TOFACITINIB CITRATE
     Dosage: 5 MG
     Dates: start: 20210622
  5. XELJANZ [Suspect]
     Active Substance: TOFACITINIB CITRATE
     Dosage: 5 MG
     Dates: end: 20220210

REACTIONS (8)
  - Off label use [Unknown]
  - Product dose omission issue [Unknown]
  - Contusion [Unknown]
  - Skin haemorrhage [Unknown]
  - Osteoma [Unknown]
  - Chills [Unknown]
  - Body temperature decreased [Unknown]
  - Swelling [Unknown]

NARRATIVE: CASE EVENT DATE: 20210701
